FAERS Safety Report 7876370-9 (Version None)
Quarter: 2011Q4

REPORT INFORMATION
  Report Type: 
  Country: None (occurrence: None)
  Receive Date: 20111031
  Receipt Date: 20111024
  Transmission Date: 20120403
  Serious: Yes (Disabling)
  Sender: FDA-Public Use
  Company Number: US-MERCK-1103USA03605

PATIENT
  Age: 32 Year
  Sex: Male

DRUGS (4)
  1. PROPECIA [Suspect]
     Route: 048
     Dates: start: 20080701, end: 20081201
  2. PROPECIA [Suspect]
     Indication: HAIR TRANSPLANT
     Route: 048
     Dates: start: 20081201, end: 20100702
  3. PROPECIA [Suspect]
     Indication: ALOPECIA
     Route: 048
     Dates: start: 20080701, end: 20081201
  4. HEMP [Suspect]
     Route: 065

REACTIONS (6)
  - LIBIDO DECREASED [None]
  - DEPRESSION [None]
  - ANXIETY [None]
  - EMOTIONAL DISTRESS [None]
  - FATIGUE [None]
  - STRESS [None]
